FAERS Safety Report 15544174 (Version 1)
Quarter: 2018Q4

REPORT INFORMATION
  Report Type: Spontaneous
  Country: SK (occurrence: SK)
  Receive Date: 20181024
  Receipt Date: 20181024
  Transmission Date: 20190205
  Serious: Yes (Life-Threatening, Hospitalization)
  Sender: FDA-Public Use
  Company Number: SK-SUN PHARMACEUTICAL INDUSTRIES LTD-2018RR-188912

PATIENT
  Age: 66 Year
  Sex: Male

DRUGS (2)
  1. CLARITHROMYCIN. [Suspect]
     Active Substance: CLARITHROMYCIN
     Indication: PNEUMONIA CHLAMYDIAL
     Dosage: UNK
     Route: 051
  2. CEFOTAXIME [Suspect]
     Active Substance: CEFOTAXIME SODIUM
     Indication: RESPIRATORY TRACT INFECTION
     Dosage: UNK ()
     Route: 051

REACTIONS (6)
  - Ileus paralytic [Recovered/Resolved]
  - Abdominal distension [Recovered/Resolved]
  - Diarrhoea [Recovered/Resolved]
  - Pseudomembranous colitis [Recovering/Resolving]
  - Megacolon [Recovering/Resolving]
  - Clostridium difficile colitis [Recovering/Resolving]
